FAERS Safety Report 4553281-8 (Version None)
Quarter: 2005Q1

REPORT INFORMATION
  Report Type: 
  Country: None (occurrence: None)
  Receive Date: 20050113
  Receipt Date: 20050103
  Transmission Date: 20050727
  Serious: Yes (Other)
  Sender: FDA-Public Use
  Company Number: 2005-01-0015

PATIENT
  Age: 47 Year
  Sex: Male

DRUGS (1)
  1. CLARINEX [Suspect]
     Dosage: ORAL
     Route: 048

REACTIONS (1)
  - BLOOD PRESSURE INCREASED [None]
